FAERS Safety Report 15941274 (Version 1)
Quarter: 2019Q1

REPORT INFORMATION
  Report Type: Spontaneous
  Country: AU (occurrence: AU)
  Receive Date: 20190208
  Receipt Date: 20190208
  Transmission Date: 20190417
  Serious: Yes (Hospitalization, Other)
  Sender: FDA-Public Use
  Company Number: AU-ASTRAZENECA-2019SE19768

PATIENT
  Age: 37 Year
  Sex: Female

DRUGS (8)
  1. EPILIM [Concomitant]
     Active Substance: VALPROATE SODIUM
  2. EPILIM [Concomitant]
     Active Substance: VALPROATE SODIUM
  3. RIVOTRIL [Concomitant]
     Active Substance: CLONAZEPAM
     Indication: RESTLESS LEGS SYNDROME
  4. SEROQUEL [Suspect]
     Active Substance: QUETIAPINE FUMARATE
     Dosage: 900 MG IN THE MORNING AND 600 MG AT NIGHT
     Route: 048
  5. RIVOTRIL [Concomitant]
     Active Substance: CLONAZEPAM
     Indication: RESTLESS LEGS SYNDROME
     Dosage: 2MG TABLET, (1/4 TO1/2 AT NIGHT)
  6. CLOMIPRAMINE [Concomitant]
     Active Substance: CLOMIPRAMINE
  7. EPILIM [Concomitant]
     Active Substance: VALPROATE SODIUM
  8. CLOZAPINE. [Concomitant]
     Active Substance: CLOZAPINE
     Indication: SCHIZOPHRENIA

REACTIONS (5)
  - Persecutory delusion [Unknown]
  - Obsessive-compulsive disorder [Unknown]
  - Drug ineffective [Unknown]
  - Hallucination, auditory [Unknown]
  - Epilepsy [Recovering/Resolving]
